FAERS Safety Report 7948999-0 (Version None)
Quarter: 2011Q4

REPORT INFORMATION
  Report Type: 
  Country: None (occurrence: None)
  Receive Date: 20111130
  Receipt Date: 20111125
  Transmission Date: 20120403
  Serious: Yes (Hospitalization, Other)
  Sender: FDA-Public Use
  Company Number: JP-PFIZER INC-2011265051

PATIENT
  Age: 51 Year
  Sex: Male
  Weight: 63.4 kg

DRUGS (10)
  1. LOXONIN [Suspect]
     Indication: PAIN
     Dosage: 60 MG, 3X/DAY
     Route: 048
     Dates: start: 20110722, end: 20111021
  2. AMOBANTES [Suspect]
     Indication: INSOMNIA
     Dosage: 7.5 MG, 1X/DAY
     Route: 048
  3. ALACEPUL [Suspect]
     Indication: HYPERTENSION
     Dosage: 25 MG/DAY
     Route: 048
  4. NEUROTROPIN [Suspect]
     Indication: NEUROPATHY PERIPHERAL
     Dosage: 8 IU, 2X/DAY
     Route: 048
  5. URDENACIN [Suspect]
     Indication: HEPATIC FUNCTION ABNORMAL
     Dosage: 100 MG, 3X/DAY
     Route: 048
     Dates: start: 20110906
  6. FUZULEBAN [Suspect]
     Indication: PRODUCTIVE COUGH
     Dosage: 15 MG, 3X/DAY
     Route: 048
     Dates: start: 20110722, end: 20111019
  7. LYRICA [Suspect]
     Indication: NEUROPATHY PERIPHERAL
     Dosage: 75 MG, 1X/DAY
     Route: 048
     Dates: start: 20110704
  8. MUCOSTA [Suspect]
     Indication: GASTRIC DISORDER
     Dosage: 100 MG, 3X/DAY
     Route: 048
     Dates: start: 20110722, end: 20111021
  9. ETISEDAN [Suspect]
     Indication: ANXIETY
     Dosage: 0.5 MG, 1X/DAY
     Route: 048
  10. MAGMITT [Suspect]
     Indication: CONSTIPATION
     Dosage: 500 MG, 3X/DAY
     Route: 048

REACTIONS (3)
  - DEVICE OCCLUSION [None]
  - CRYSTAL URINE [None]
  - URINE ABNORMALITY [None]
